FAERS Safety Report 5083987-6 (Version None)
Quarter: 2006Q3

REPORT INFORMATION
  Report Type: 
  Country: None (occurrence: None)
  Receive Date: 20060814
  Receipt Date: 20060801
  Transmission Date: 20061208
  Serious: Yes (Hospitalization)
  Sender: FDA-Public Use
  Company Number: 2006087449

PATIENT
  Age: 52 Year
  Sex: Female
  Weight: 100 kg

DRUGS (14)
  1. CELEBREX [Suspect]
     Indication: ARTHRALGIA
     Dosage: 400 MG (200 MG), ORAL
     Route: 048
     Dates: start: 20050701, end: 20050704
  2. CELEBREX [Suspect]
     Indication: MYALGIA
     Dosage: 400 MG (200 MG), ORAL
     Route: 048
     Dates: start: 20050701, end: 20050704
  3. PREDNISOLONE [Suspect]
     Indication: SYSTEMIC LUPUS ERYTHEMATOSUS
     Dosage: ORAL
     Route: 048
  4. PREDNISOLONE [Suspect]
     Indication: VASCULITIS
     Dosage: ORAL
     Route: 048
  5. METHOTREXATE SODIUM [Concomitant]
  6. CHLOROQUINE (CHLORQUINE) [Concomitant]
  7. AZATHIOPRINE SODIUM [Concomitant]
  8. DILTIAZEM [Concomitant]
  9. CIBACEN (BENAZEPRIL HYDROCHLORIDE) [Concomitant]
  10. CLOPIDOGREL [Concomitant]
  11. BISOPROLOL FUMARATE [Concomitant]
  12. SIMVASTATIN [Concomitant]
  13. TRAMADOL HCL [Concomitant]
  14. GABAPENTIN [Concomitant]

REACTIONS (8)
  - ANGINA PECTORIS [None]
  - DEPRESSED MOOD [None]
  - GASTRIC ULCER [None]
  - GASTRITIS [None]
  - OESOPHAGITIS [None]
  - PNEUMONIA [None]
  - PULMONARY CONGESTION [None]
  - TRIGEMINAL NEURALGIA [None]
